FAERS Safety Report 24593669 (Version 1)
Quarter: 2024Q4

REPORT INFORMATION
  Report Type: Spontaneous
  Country: US (occurrence: US)
  Receive Date: 20241108
  Receipt Date: 20241108
  Transmission Date: 20250115
  Serious: No
  Sender: BAXTER
  Company Number: US-BAXTER-2024BAX027068

PATIENT
  Sex: Female

DRUGS (1)
  1. ZOSYN [Suspect]
     Active Substance: PIPERACILLIN SODIUM\TAZOBACTAM SODIUM
     Indication: Gallbladder operation
     Dosage: 5 DOSES OF ZOSYN
     Route: 065
     Dates: start: 20240627, end: 20240627

REACTIONS (3)
  - Rash [Recovered/Resolved]
  - Discharge [Recovered/Resolved]
  - Diarrhoea [Not Recovered/Not Resolved]

NARRATIVE: CASE EVENT DATE: 20240628
